FAERS Safety Report 4959912-2 (Version None)
Quarter: 2006Q1

REPORT INFORMATION
  Report Type: 
  Country: None (occurrence: None)
  Receive Date: 20060331
  Receipt Date: 20060324
  Transmission Date: 20060701
  Serious: Yes (Hospitalization)
  Sender: FDA-Public Use
  Company Number: US-MERCK-0603USA04069

PATIENT
  Age: 73 Year
  Sex: Female
  Weight: 80 kg

DRUGS (9)
  1. VIOXX [Suspect]
     Indication: PAIN
     Route: 048
     Dates: start: 20040504
  2. HYDROCHLOROTHIAZIDE [Concomitant]
     Indication: HYPERTENSION
     Route: 065
     Dates: start: 20040101
  3. ECOTRIN [Concomitant]
     Indication: PAIN
     Route: 065
  4. ZOCOR [Concomitant]
     Indication: BLOOD CHOLESTEROL
     Route: 065
     Dates: start: 20000201
  5. MODURETIC 5-50 [Concomitant]
     Indication: HYPERTENSION
     Route: 065
     Dates: start: 20040101
  6. MODURETIC 5-50 [Concomitant]
     Indication: POLYURIA
     Route: 065
     Dates: start: 20040101
  7. PLAVIX [Concomitant]
     Route: 065
     Dates: start: 20040101
  8. ARICEPT [Concomitant]
     Indication: MEMORY IMPAIRMENT
     Route: 065
     Dates: start: 20040101
  9. IMIPRAMINE HYDROCHLORIDE [Concomitant]
     Indication: DEPRESSION
     Route: 065
     Dates: start: 19990101

REACTIONS (5)
  - CEREBROVASCULAR ACCIDENT [None]
  - DEMENTIA [None]
  - EPILEPSY [None]
  - PULMONARY OEDEMA [None]
  - TRANSIENT ISCHAEMIC ATTACK [None]
